FAERS Safety Report 13459722 (Version 1)
Quarter: 2017Q2

REPORT INFORMATION
  Report Type: Report from Study
  Country: None (occurrence: US)
  Receive Date: 20170420
  Receipt Date: 20170420
  Transmission Date: 20170830
  Serious: Yes (Other)
  Sender: FDA-Public Use
  Company Number: US-ABBVIE-17K-163-1944775-00

PATIENT
  Sex: Female

DRUGS (1)
  1. HUMIRA [Suspect]
     Active Substance: ADALIMUMAB
     Indication: COLITIS ULCERATIVE
     Route: 058

REACTIONS (6)
  - Depression [Unknown]
  - Weight increased [Unknown]
  - Mixed connective tissue disease [Unknown]
  - Rash [Unknown]
  - Systemic lupus erythematosus [Unknown]
  - Feeling of despair [Unknown]
